FAERS Safety Report 5023617-2 (Version None)
Quarter: 2006Q2

REPORT INFORMATION
  Report Type: 
  Country: None (occurrence: None)
  Receive Date: 20060606
  Receipt Date: 20060522
  Transmission Date: 20061013
  Serious: Yes (Other)
  Sender: FDA-Public Use
  Company Number: 225414

PATIENT
  Age: 51 Year
  Sex: Female

DRUGS (3)
  1. HERCEPTIN [Suspect]
     Indication: BREAST CANCER METASTATIC
  2. RADIATION THERAPY (RADIATIO THERAPY) [Concomitant]
  3. ..................... [Concomitant]

REACTIONS (9)
  - APOPTOSIS [None]
  - DRUG HYPERSENSITIVITY [None]
  - LYMPHOMA [None]
  - METASTASES TO CENTRAL NERVOUS SYSTEM [None]
  - METASTASES TO LIVER [None]
  - METASTASIS [None]
  - NECROTISING PANNICULITIS [None]
  - OSTEONECROSIS [None]
  - WEGENER'S GRANULOMATOSIS [None]
